FAERS Safety Report 9646005 (Version 1)
Quarter: 2013Q4

REPORT INFORMATION
  Report Type: Report from Study
  Country: US (occurrence: US)
  Receive Date: 20131025
  Receipt Date: 20131025
  Transmission Date: 20140711
  Serious: Yes (Hospitalization, Other)
  Sender: FDA-Public Use
  Company Number: US-GLAXOSMITHKLINE-Z0018065A

PATIENT
  Age: 71 Year
  Sex: Female
  Weight: 85.5 kg

DRUGS (14)
  1. TRAMETINIB [Suspect]
     Indication: MALIGNANT MELANOMA
     Dosage: 2MG PER DAY
     Route: 048
     Dates: start: 20121203
  2. DABRAFENIB [Suspect]
     Indication: MALIGNANT MELANOMA
     Dosage: 150MG TWICE PER DAY
     Route: 048
     Dates: start: 20121203
  3. TRAMADOL [Concomitant]
     Indication: PAIN
     Dosage: 50MG AS REQUIRED
     Route: 048
     Dates: start: 20121016
  4. ALBUTEROL 0.083% [Concomitant]
     Indication: WHEEZING
     Dosage: 2.5MG AS REQUIRED
     Route: 055
     Dates: start: 2009
  5. IPRATROPIUM [Concomitant]
     Indication: WHEEZING
     Dosage: 500MCG AS REQUIRED
     Route: 055
     Dates: start: 20121217, end: 20121217
  6. LIPITOR [Concomitant]
     Indication: BLOOD CHOLESTEROL INCREASED
     Dosage: 10MG PER DAY
     Route: 048
     Dates: start: 2009
  7. ALLOPURINOL [Concomitant]
     Indication: PROPHYLAXIS
     Dosage: 300MG PER DAY
     Route: 048
     Dates: start: 20121130
  8. HEPARIN [Concomitant]
     Indication: PROPHYLAXIS
     Dosage: 5000UNIT THREE TIMES PER DAY
     Route: 058
     Dates: start: 20121217, end: 20121221
  9. SODIUM CHLORIDE 0.9% [Concomitant]
     Dosage: 2.5ML THREE TIMES PER DAY
     Route: 042
     Dates: start: 20121217, end: 20121221
  10. POTASSIUM CHLORIDE [Concomitant]
     Indication: HYPOKALAEMIA
     Dosage: 60MEQ SINGLE DOSE
     Route: 048
     Dates: start: 20121217, end: 20121217
  11. POTASSIUM CHLORIDE [Concomitant]
     Indication: HYPOKALAEMIA
     Dosage: 60MEQ SINGLE DOSE
     Route: 048
     Dates: start: 20121218, end: 20121218
  12. ASPIRIN [Concomitant]
     Indication: MYOCARDIAL ISCHAEMIA
     Dosage: 81MG PER DAY
     Route: 048
     Dates: start: 1996
  13. FLUTICASONE [Concomitant]
     Indication: HYPERSENSITIVITY
     Dosage: 44MCG TWICE PER DAY
     Route: 055
     Dates: start: 20111213
  14. SYNTHROID [Concomitant]
     Indication: HYPOTHYROIDISM
     Dosage: 50MCG PER DAY
     Route: 048
     Dates: start: 20090702

REACTIONS (9)
  - Pyrexia [Recovered/Resolved]
  - Dehydration [Recovered/Resolved]
  - Blood creatine phosphokinase increased [Recovered/Resolved]
  - Troponin I increased [Recovered/Resolved]
  - Vomiting [Recovered/Resolved]
  - Pneumonitis [Recovered/Resolved]
  - Diarrhoea [Recovered/Resolved with Sequelae]
  - Hypotension [Recovered/Resolved]
  - Hyponatraemia [Recovered/Resolved]
